FAERS Safety Report 14106413 (Version 2)
Quarter: 2017Q4

REPORT INFORMATION
  Report Type: Spontaneous
  Country: DE (occurrence: DE)
  Receive Date: 20171019
  Receipt Date: 20171024
  Transmission Date: 20180321
  Serious: Yes (Other)
  Sender: FDA-Public Use
  Company Number: DE-SUN PHARMACEUTICAL INDUSTRIES LTD-2017RR-152806

PATIENT
  Age: 76 Year
  Sex: Female

DRUGS (1)
  1. CIPRO [Suspect]
     Active Substance: CIPROFLOXACIN HYDROCHLORIDE
     Indication: DIVERTICULITIS
     Route: 048

REACTIONS (5)
  - Facial neuralgia [Unknown]
  - Rash pustular [Unknown]
  - Visual impairment [Unknown]
  - Swelling face [Unknown]
  - Headache [Unknown]
